FAERS Safety Report 5902258-6 (Version None)
Quarter: 2008Q3

REPORT INFORMATION
  Report Type: 
  Country: None (occurrence: None)
  Receive Date: 20080929
  Receipt Date: 20080102
  Transmission Date: 20090109
  Serious: No
  Sender: FDA-Public Use
  Company Number: US-BAUSCH-2008BL000006

PATIENT
  Age: 44 Year
  Sex: Male

DRUGS (8)
  1. NEOMYCIN AND POLYMXIN B SULFATES AND HYDROCORTISONE [Suspect]
     Indication: EAR PAIN
     Route: 001
     Dates: start: 20071025, end: 20080101
  2. NEOMYCIN AND POLYMXIN B SULFATES AND HYDROCORTISONE [Suspect]
     Indication: EAR PRURITUS
     Route: 001
     Dates: start: 20071025, end: 20080101
  3. GLUCOPHAGE [Concomitant]
  4. LOPID [Concomitant]
  5. TYLENOL /USA/ [Concomitant]
  6. ASPIRIN [Concomitant]
  7. ZANTAC [Concomitant]
  8. ALBUTEROL [Concomitant]

REACTIONS (4)
  - AURICULAR SWELLING [None]
  - EAR DISCOMFORT [None]
  - EAR DISORDER [None]
  - SKIN IRRITATION [None]
